FAERS Safety Report 25425785 (Version 2)
Quarter: 2025Q3

REPORT INFORMATION
  Report Type: Report from Study
  Country: US (occurrence: US)
  Receive Date: 20250611
  Receipt Date: 20250919
  Transmission Date: 20251020
  Serious: Yes (Other)
  Sender: MALLINCKRODT
  Company Number: US-MALLINCKRODT-MNK202500335

PATIENT
  Age: 63 Year
  Sex: Female

DRUGS (6)
  1. CORTICOTROPIN [Suspect]
     Active Substance: CORTICOTROPIN
     Indication: Psoriatic arthropathy
     Route: 058
     Dates: start: 2024
  2. CORTICOTROPIN [Suspect]
     Active Substance: CORTICOTROPIN
     Indication: Psoriasis
  3. OTEZLA [Concomitant]
     Active Substance: APREMILAST
  4. COSENTYX [Concomitant]
     Active Substance: SECUKINUMAB
  5. METHOTREXATE [Concomitant]
     Active Substance: METHOTREXATE
  6. CIMZIA [Concomitant]
     Active Substance: CERTOLIZUMAB PEGOL

REACTIONS (10)
  - Scleroderma [Not Recovered/Not Resolved]
  - Endodontic procedure [Unknown]
  - Psoriasis [Not Recovered/Not Resolved]
  - Condition aggravated [Not Recovered/Not Resolved]
  - Sensitivity to weather change [Unknown]
  - Illness [Unknown]
  - Joint swelling [Unknown]
  - Headache [Recovering/Resolving]
  - Pyrexia [Unknown]
  - Injection site bruising [Recovering/Resolving]

NARRATIVE: CASE EVENT DATE: 20240101
